FAERS Safety Report 21635834 (Version 1)
Quarter: 2022Q4

REPORT INFORMATION
  Report Type: Report from Study
  Country: US (occurrence: US)
  Receive Date: 20221123
  Receipt Date: 20221123
  Transmission Date: 20230113
  Serious: Yes (Other)
  Sender: FDA-Public Use
  Company Number: US-ABBVIE-4211313

PATIENT
  Age: 57 Year
  Sex: Female

DRUGS (1)
  1. HUMIRA [Suspect]
     Active Substance: ADALIMUMAB
     Indication: Ankylosing spondylitis
     Route: 058
     Dates: start: 20210909, end: 20220915

REACTIONS (4)
  - Ligament sprain [Not Recovered/Not Resolved]
  - Skin laceration [Not Recovered/Not Resolved]
  - Arthritis [Unknown]
  - Infection [Not Recovered/Not Resolved]

NARRATIVE: CASE EVENT DATE: 20220801
